FAERS Safety Report 5841154-X (Version None)
Quarter: 2008Q3

REPORT INFORMATION
  Report Type: 
  Country: None (occurrence: None)
  Receive Date: 20080807
  Receipt Date: 20080807
  Transmission Date: 20090109
  Serious: Yes (Death)
  Sender: FDA-Public Use
  Company Number: None

PATIENT
  Age: 36 Year
  Sex: Female
  Weight: 90.7194 kg

DRUGS (2)
  1. DURAGESIC-50 [Suspect]
     Indication: SURGERY
     Dosage: 50 MCG/HR EVERY 72 HOURS TRANSDERMAL
     Route: 062
     Dates: start: 20080503, end: 20080504
  2. PROMETHAZINE [Concomitant]

REACTIONS (3)
  - CARDIO-RESPIRATORY ARREST [None]
  - DRUG TOXICITY [None]
  - UNRESPONSIVE TO STIMULI [None]
